FAERS Safety Report 4434487-5 (Version None)
Quarter: 2004Q3

REPORT INFORMATION
  Report Type: 
  Country: None (occurrence: None)
  Receive Date: 20040726
  Receipt Date: 20040312
  Transmission Date: 20050211
  Serious: No
  Sender: FDA-Public Use
  Company Number: USA040361965

PATIENT
  Age: 69 Year
  Sex: Female
  Weight: 74 kg

DRUGS (2)
  1. FORTEO [Suspect]
     Dates: start: 20040101
  2. ENBREL [Concomitant]

REACTIONS (3)
  - INSOMNIA [None]
  - MUSCLE CRAMP [None]
  - PAIN [None]
